FAERS Safety Report 18891158 (Version 1)
Quarter: 2021Q1

REPORT INFORMATION
  Report Type: Spontaneous
  Country: US (occurrence: US)
  Receive Date: 20210215
  Receipt Date: 20210215
  Transmission Date: 20210420
  Serious: No
  Sender: FDA-Public Use
  Company Number: US-ASTRAZENECA-2021A049178

PATIENT
  Age: 675 Month
  Sex: Female

DRUGS (6)
  1. QUETIAPINE FUMARATE XR [Suspect]
     Active Substance: QUETIAPINE FUMARATE
     Indication: BIPOLAR DISORDER
     Dosage: 25.0MG UNKNOWN
     Route: 048
     Dates: start: 202012
  2. QUETIAPINE FUMARATE XR [Suspect]
     Active Substance: QUETIAPINE FUMARATE
     Indication: ANXIETY
     Dosage: 75.0MG UNKNOWN
     Route: 048
     Dates: start: 202009
  3. QUETIAPINE FUMARATE XR [Suspect]
     Active Substance: QUETIAPINE FUMARATE
     Indication: ANXIETY
     Dosage: 50.0MG UNKNOWN
     Route: 048
  4. QUETIAPINE FUMARATE XR [Suspect]
     Active Substance: QUETIAPINE FUMARATE
     Indication: BIPOLAR DISORDER
     Dosage: 75.0MG UNKNOWN
     Route: 048
     Dates: start: 202009
  5. QUETIAPINE FUMARATE XR [Suspect]
     Active Substance: QUETIAPINE FUMARATE
     Indication: ANXIETY
     Dosage: 25.0MG UNKNOWN
     Route: 048
     Dates: start: 202012
  6. QUETIAPINE FUMARATE XR [Suspect]
     Active Substance: QUETIAPINE FUMARATE
     Indication: BIPOLAR DISORDER
     Dosage: 50.0MG UNKNOWN
     Route: 048

REACTIONS (8)
  - Nervousness [Unknown]
  - Paraesthesia [Unknown]
  - Restlessness [Unknown]
  - Insomnia [Unknown]
  - Headache [Unknown]
  - Dyskinesia [Unknown]
  - Tinnitus [Unknown]
  - Tremor [Unknown]

NARRATIVE: CASE EVENT DATE: 202011
